FAERS Safety Report 16534452 (Version 2)
Quarter: 2019Q4

REPORT INFORMATION
  Report Type: Spontaneous
  Country: FR (occurrence: FR)
  Receive Date: 20190705
  Receipt Date: 20191121
  Transmission Date: 20200122
  Serious: Yes (Life-Threatening, Hospitalization, Other)
  Sender: FDA-Public Use
  Company Number: PHHY2019FR156124

PATIENT
  Age: 51 Year
  Sex: Male
  Weight: 85.5 kg

DRUGS (5)
  1. BISOPROLOL [Concomitant]
     Active Substance: BISOPROLOL
     Indication: ISCHAEMIC CARDIOMYOPATHY
     Dosage: 5 UNK
     Route: 048
     Dates: start: 201707
  2. IMETH [Concomitant]
     Active Substance: METHOTREXATE SODIUM
     Indication: RHEUMATOID ARTHRITIS
     Dosage: 25 MG/ML, QW
     Route: 065
  3. ENTRESTO [Suspect]
     Active Substance: SACUBITRIL\VALSARTAN
     Indication: CARDIAC FAILURE
     Dosage: 200 MG, BID
     Route: 048
     Dates: start: 201802, end: 20180604
  4. ASPEGIC [Concomitant]
     Indication: ISCHAEMIC CARDIOMYOPATHY
     Dosage: 100 UNK
     Route: 048
     Dates: start: 20170709
  5. BRILIQUE [Concomitant]
     Active Substance: TICAGRELOR
     Indication: ISCHAEMIC CARDIOMYOPATHY
     Dosage: 90 UNK
     Route: 048
     Dates: start: 20170709

REACTIONS (2)
  - Cardiogenic shock [Recovered/Resolved with Sequelae]
  - Cardiac failure [Recovered/Resolved with Sequelae]

NARRATIVE: CASE EVENT DATE: 20180604
